FAERS Safety Report 19078167 (Version 1)
Quarter: 2021Q1

REPORT INFORMATION
  Report Type: Spontaneous
  Country: DE (occurrence: DE)
  Receive Date: 20210331
  Receipt Date: 20210331
  Transmission Date: 20210420
  Serious: Yes (Other)
  Sender: FDA-Public Use
  Company Number: DE-ASTRAZENECA-2021A193366

PATIENT
  Age: 61 Year
  Sex: Female

DRUGS (3)
  1. RAMIPRIL. [Concomitant]
     Active Substance: RAMIPRIL
  2. BERODUAL [Concomitant]
     Active Substance: FENOTEROL HYDROBROMIDE\IPRATROPIUM BROMIDE
  3. FORMOTEROL/BUDESONIDE [Suspect]
     Active Substance: BUDESONIDE\FORMOTEROL
     Dosage: UNKNOWN UNKNOWN
     Route: 055

REACTIONS (13)
  - Dyspnoea [Unknown]
  - C-reactive protein increased [Unknown]
  - Sputum increased [Unknown]
  - Wheezing [Unknown]
  - Lacrimation increased [Unknown]
  - Cyanosis [Unknown]
  - White blood cell count increased [Unknown]
  - Sneezing [Unknown]
  - Discomfort [Unknown]
  - Cough [Unknown]
  - Chronic obstructive pulmonary disease [Unknown]
  - Chest pain [Unknown]
  - Poor quality sleep [Unknown]
